FAERS Safety Report 10011328 (Version 1)
Quarter: 2014Q1

REPORT INFORMATION
  Report Type: Spontaneous
  Country: FR (occurrence: FR)
  Receive Date: 20140314
  Receipt Date: 20140314
  Transmission Date: 20141002
  Serious: Yes (Other)
  Sender: FDA-Public Use
  Company Number: FR-JNJFOC-20140302148

PATIENT
  Age: 60 Year
  Sex: Male
  Weight: 50 kg

DRUGS (8)
  1. RISPERDAL [Suspect]
     Indication: PRODUCT USED FOR UNKNOWN INDICATION
     Route: 048
     Dates: start: 20131112, end: 20131120
  2. DILTIAZEM [Suspect]
     Indication: HYPERTENSION
     Route: 048
     Dates: end: 20131220
  3. OMEPRAZOLE [Concomitant]
     Indication: PROPHYLAXIS
     Route: 048
  4. KARDEGIC [Concomitant]
     Indication: PRODUCT USED FOR UNKNOWN INDICATION
     Route: 048
  5. CRESTOR [Concomitant]
     Indication: DYSLIPIDAEMIA
     Route: 048
  6. FUNGIZONE [Concomitant]
     Indication: LUNG DISORDER
     Route: 048
     Dates: start: 20131112
  7. SPECIAFOLDINE [Concomitant]
     Indication: PRODUCT USED FOR UNKNOWN INDICATION
     Route: 048
  8. COVERSYL [Concomitant]
     Indication: HYPERTENSION
     Route: 048

REACTIONS (2)
  - Electrocardiogram repolarisation abnormality [Unknown]
  - Electrocardiogram QT prolonged [Unknown]
